FAERS Safety Report 13072117 (Version 1)
Quarter: 2016Q4

REPORT INFORMATION
  Report Type: Spontaneous
  Country: US (occurrence: US)
  Receive Date: 20161229
  Receipt Date: 20161229
  Transmission Date: 20170207
  Serious: No
  Sender: FDA-Public Use
  Company Number: US-ELI_LILLY_AND_COMPANY-US201612001703

PATIENT
  Age: 45 Year
  Sex: Female

DRUGS (2)
  1. ANDROGEL [Suspect]
     Active Substance: TESTOSTERONE
     Indication: PRODUCT USED FOR UNKNOWN INDICATION
     Dosage: UNK, QD
     Route: 062
     Dates: start: 201506
  2. AXIRON [Suspect]
     Active Substance: TESTOSTERONE
     Indication: PRODUCT USED FOR UNKNOWN INDICATION
     Dosage: UNK UNK, UNKNOWN
     Route: 065
     Dates: start: 201409, end: 201606

REACTIONS (5)
  - Congenital eye naevus [Not Recovered/Not Resolved]
  - Visual field defect [Unknown]
  - Accidental exposure to product [Unknown]
  - Eye swelling [Unknown]
  - Secretion discharge [Unknown]

NARRATIVE: CASE EVENT DATE: 201512
